FAERS Safety Report 19712446 (Version 1)
Quarter: 2021Q3

REPORT INFORMATION
  Report Type: Spontaneous
  Country: US (occurrence: US)
  Receive Date: 20210816
  Receipt Date: 20210816
  Transmission Date: 20211014
  Serious: No
  Sender: FDA-Public Use
  Company Number: US-KALA PHARAMACEUTICALS-2021KLA00045

PATIENT
  Sex: Female

DRUGS (1)
  1. EYSUVIS [Suspect]
     Active Substance: LOTEPREDNOL ETABONATE

REACTIONS (2)
  - Oropharyngeal spasm [Recovered/Resolved]
  - Muscle spasms [Recovered/Resolved]
